FAERS Safety Report 16862598 (Version 1)
Quarter: 2019Q3

REPORT INFORMATION
  Report Type: Spontaneous
  Country: US (occurrence: US)
  Receive Date: 20190927
  Receipt Date: 20190927
  Transmission Date: 20191005
  Serious: Yes (Other)
  Sender: FDA-Public Use
  Company Number: US-PFIZER INC-2019412090

PATIENT
  Age: 56 Year
  Sex: Female

DRUGS (1)
  1. NICOTROL [Suspect]
     Active Substance: NICOTINE
     Dosage: UNK (QUANTITY FOR 90 DAYS: 3 INHALERS)

REACTIONS (2)
  - Drug ineffective [Unknown]
  - Myocardial infarction [Unknown]
